FAERS Safety Report 21190647 (Version 5)
Quarter: 2023Q2

REPORT INFORMATION
  Report Type: Report from Study
  Country: BE (occurrence: None)
  Receive Date: 20220809
  Receipt Date: 20230623
  Transmission Date: 20230722
  Serious: Yes (Life-Threatening, Hospitalization)
  Sender: FDA-Public Use
  Company Number: BE-ROCHE-3145389

PATIENT
  Age: 73 Year
  Sex: Female

DRUGS (8)
  1. VENETOCLAX [Suspect]
     Active Substance: VENETOCLAX
     Indication: Chronic lymphocytic leukaemia
     Dosage: DATE OF LAST DOSE 19/JUL/2022, 01/FEB/2023 DAY ONE TO 28 DAY
     Route: 048
     Dates: start: 20220324
  2. OBINUTUZUMAB [Suspect]
     Active Substance: OBINUTUZUMAB
     Indication: Chronic lymphocytic leukaemia
     Dosage: DATE OF LAST DOSE 23/JUN/2022, 17/AUG/2022 DAY 1
     Route: 042
     Dates: start: 20220303
  3. VENLAFAXINE HYDROCHLORIDE [Concomitant]
     Active Substance: VENLAFAXINE HYDROCHLORIDE
  4. ASCORBIC ACID\FERROUS SULFATE [Concomitant]
     Active Substance: ASCORBIC ACID\FERROUS SULFATE
  5. LEVOTHYROXINE [Concomitant]
     Active Substance: LEVOTHYROXINE
  6. NEBIVOLOL [Concomitant]
     Active Substance: NEBIVOLOL
  7. PANTOPRAZOLE SODIUM [Concomitant]
     Active Substance: PANTOPRAZOLE SODIUM
  8. SEROQUEL [Concomitant]
     Active Substance: QUETIAPINE FUMARATE

REACTIONS (2)
  - Pneumonia haemophilus [Recovered/Resolved]
  - Pneumonia viral [Recovered/Resolved]

NARRATIVE: CASE EVENT DATE: 20220720
